FAERS Safety Report 17799527 (Version 1)
Quarter: 2020Q2

REPORT INFORMATION
  Report Type: Spontaneous
  Country: CN (occurrence: CN)
  Receive Date: 20200518
  Receipt Date: 20200518
  Transmission Date: 20200714
  Serious: Yes (Other)
  Sender: FDA-Public Use
  Company Number: CN-BAYER-2020-086351

PATIENT
  Age: 29 Year
  Sex: Female

DRUGS (3)
  1. VISANNE [Suspect]
     Active Substance: DIENOGEST
     Dosage: 2 MG, QD
     Route: 048
     Dates: start: 2020
  2. MIRENA [Suspect]
     Active Substance: LEVONORGESTREL
     Dosage: 20 ?G PER DAY, CONTINUOUSLY
     Route: 015
     Dates: start: 2019, end: 202001
  3. LEUPRORELIN [Concomitant]
     Active Substance: LEUPROLIDE ACETATE
     Dosage: 3.75 MG
     Route: 042
     Dates: start: 201911

REACTIONS (4)
  - Product dose omission [None]
  - Shock haemorrhagic [None]
  - Device expulsion [Recovered/Resolved]
  - Abnormal withdrawal bleeding [None]

NARRATIVE: CASE EVENT DATE: 202001
